FAERS Safety Report 16885691 (Version 1)
Quarter: 2019Q4

REPORT INFORMATION
  Report Type: Report from Study
  Country: IT (occurrence: IT)
  Receive Date: 20191004
  Receipt Date: 20191004
  Transmission Date: 20200122
  Serious: Yes (Hospitalization)
  Sender: FDA-Public Use
  Company Number: IT-ALVOGEN-2019-ALVOGEN-101572

PATIENT
  Age: 60 Year
  Sex: Female
  Weight: 60 kg

DRUGS (8)
  1. LEVETIRACETAM. [Concomitant]
     Active Substance: LEVETIRACETAM
     Indication: PRODUCT USED FOR UNKNOWN INDICATION
  2. AMITRIPTYLINE HYDROCHLORIDE. [Suspect]
     Active Substance: AMITRIPTYLINE HYDROCHLORIDE
     Indication: PRODUCT USED FOR UNKNOWN INDICATION
  3. TRIFLUOPERAZINE HYDROCHLORIDE. [Suspect]
     Active Substance: TRIFLUOPERAZINE HYDROCHLORIDE
     Indication: PRODUCT USED FOR UNKNOWN INDICATION
     Dosage: MODALINA 2 MG COMPRESSE RIVESTITE
     Route: 048
  4. NALOXONE HYDROCHLORIDE/OXYCODONE HYDROCHLORIDE [Suspect]
     Active Substance: NALOXONE HYDROCHLORIDE\OXYCODONE HYDROCHLORIDE
     Indication: PRODUCT USED FOR UNKNOWN INDICATION
     Dosage: 40MG/20MG COMPRESSE A RILASCIO PROLUNGATO
  5. FUROSEMIDE. [Concomitant]
     Active Substance: FUROSEMIDE
     Indication: PRODUCT USED FOR UNKNOWN INDICATION
  6. OXYCODONE HYDROCHLORIDE. [Suspect]
     Active Substance: OXYCODONE HYDROCHLORIDE
     Indication: PRODUCT USED FOR UNKNOWN INDICATION
  7. LETROZOLE. [Concomitant]
     Active Substance: LETROZOLE
     Indication: PRODUCT USED FOR UNKNOWN INDICATION
     Dosage: LETROZOLO AUROBINDO 2,5 MG COMPRESSE RIVESTITE CON FILM
  8. TOPIRAMATE. [Concomitant]
     Active Substance: TOPIRAMATE
     Indication: PRODUCT USED FOR UNKNOWN INDICATION
     Dosage: TOPAMAX 200 MG COMPRESSE RIVESTITE CON FILM

REACTIONS (6)
  - Dysstasia [Recovering/Resolving]
  - Altered state of consciousness [Recovering/Resolving]
  - Drug abuse [Recovering/Resolving]
  - Dysarthria [Recovering/Resolving]
  - Disturbance in attention [Recovering/Resolving]
  - Speech disorder [Recovering/Resolving]

NARRATIVE: CASE EVENT DATE: 20190723
